FAERS Safety Report 24092978 (Version 1)
Quarter: 2024Q3

REPORT INFORMATION
  Report Type: Spontaneous
  Country: US (occurrence: US)
  Receive Date: 20240715
  Receipt Date: 20240715
  Transmission Date: 20241016
  Serious: No
  Sender: MERCK
  Company Number: US-009507513-2407USA002005

PATIENT
  Age: 32 Year
  Sex: Female

DRUGS (9)
  1. WINREVAIR [Suspect]
     Active Substance: SOTATERCEPT-CSRK
     Indication: Pulmonary arterial hypertension
     Dosage: 0.3 MILLIGRAM/KILOGRAM, Q3W
     Route: 058
     Dates: start: 20240627
  2. TADALAFIL [Concomitant]
     Active Substance: TADALAFIL
  3. OPSUMIT [Concomitant]
     Active Substance: MACITENTAN
  4. DIAMOX SEQUELS [Concomitant]
     Active Substance: ACETAZOLAMIDE
  5. DIGOXIN [Concomitant]
     Active Substance: DIGOXIN
  6. VELETRI [Concomitant]
     Active Substance: EPOPROSTENOL
  7. DEMADEX [Concomitant]
     Active Substance: TORSEMIDE
  8. MIDODRINE [Concomitant]
     Active Substance: MIDODRINE
  9. ALDACTONE [Concomitant]
     Active Substance: SPIRONOLACTONE

REACTIONS (1)
  - Rash [Not Recovered/Not Resolved]

NARRATIVE: CASE EVENT DATE: 20240629
